FAERS Safety Report 17913761 (Version 3)
Quarter: 2024Q4

REPORT INFORMATION
  Report Type: Report from Study
  Country: US (occurrence: US)
  Receive Date: 20200618
  Receipt Date: 20241219
  Transmission Date: 20250115
  Serious: Yes (Hospitalization)
  Sender: GLAXOSMITHKLINE
  Company Number: US-GLAXOSMITHKLINE-US2020GSK104172

PATIENT

DRUGS (9)
  1. MEPOLIZUMAB [Suspect]
     Active Substance: MEPOLIZUMAB
     Indication: Asthma
     Dosage: 300 MG, MO
     Route: 058
     Dates: start: 20180701, end: 20200726
  2. ALBUTEROL [Concomitant]
     Active Substance: ALBUTEROL
     Indication: Asthma
     Dosage: 2.5 MG, QD
     Route: 055
     Dates: start: 20180701, end: 20200726
  3. SINGULAIR [Concomitant]
     Active Substance: MONTELUKAST SODIUM
     Indication: Asthma
     Dosage: 10 MG, QD
     Route: 048
     Dates: start: 19980701, end: 20200726
  4. SPIRIVA RESPIMAT [Concomitant]
     Active Substance: TIOTROPIUM BROMIDE
     Indication: Asthma
     Dosage: 18 UG, QD
     Route: 048
     Dates: start: 20180701, end: 20200726
  5. SYMBICORT [Concomitant]
     Active Substance: BUDESONIDE\FORMOTEROL FUMARATE DIHYDRATE
     Indication: Asthma
     Dosage: 2 PUFF(S), BID
     Route: 055
     Dates: start: 20150701, end: 20200726
  6. DIETARY SUPPLEMENT [Concomitant]
     Active Substance: DIETARY SUPPLEMENT
     Indication: Pregnancy
     Dosage: 1 DF, QD
     Route: 048
     Dates: start: 20191204, end: 20200726
  7. DUONEB [Concomitant]
     Active Substance: ALBUTEROL SULFATE\IPRATROPIUM BROMIDE
     Indication: Product used for unknown indication
     Dosage: 0.5 MG, 4.5 DAYS
     Route: 055
     Dates: start: 20190915, end: 20200726
  8. PREDNISONE [Concomitant]
     Active Substance: PREDNISONE
     Indication: Asthma
     Dosage: 50 MG, QD
     Route: 048
  9. HYDROCORTISONE [Concomitant]
     Active Substance: HYDROCORTISONE
     Indication: Eczema
     Dosage: UNK, 3 DAYS
     Route: 061
     Dates: start: 20020701, end: 20200726

REACTIONS (5)
  - Asthma [Unknown]
  - Eczema [Unknown]
  - Multiple allergies [Unknown]
  - Gestational hypertension [Unknown]
  - Exposure during pregnancy [Unknown]

NARRATIVE: CASE EVENT DATE: 20191204
